FAERS Safety Report 14387269 (Version 2)
Quarter: 2018Q1

REPORT INFORMATION
  Report Type: Report from Study
  Country: US (occurrence: US)
  Receive Date: 20180115
  Receipt Date: 20180202
  Transmission Date: 20180509
  Serious: Yes (Hospitalization)
  Sender: FDA-Public Use
  Company Number: US-VIFOR (INTERNATIONAL) INC.-VIT-2018-00303

PATIENT
  Age: 82 Year
  Sex: Male
  Weight: 71.28 kg

DRUGS (1)
  1. VELTASSA [Suspect]
     Active Substance: PATIROMER
     Indication: BLOOD POTASSIUM INCREASED
     Route: 048
     Dates: start: 201710, end: 20180102

REACTIONS (9)
  - Pulmonary oedema [Recovered/Resolved]
  - Hypokalaemia [Not Recovered/Not Resolved]
  - Influenza [Recovered/Resolved]
  - Feeding disorder [Recovered/Resolved]
  - Sepsis [Recovered/Resolved]
  - Malaise [Recovered/Resolved]
  - Respiratory failure [Recovered/Resolved]
  - Chronic kidney disease [Recovered/Resolved]
  - Pneumonia [Recovered/Resolved]

NARRATIVE: CASE EVENT DATE: 201801
